FAERS Safety Report 5907827-5 (Version None)
Quarter: 2008Q4

REPORT INFORMATION
  Report Type: 
  Country: None (occurrence: None)
  Receive Date: 20081003
  Receipt Date: 20080925
  Transmission Date: 20090506
  Serious: Yes (Hospitalization, Other)
  Sender: FDA-Public Use
  Company Number: US-PFIZER INC-2005121715

PATIENT
  Sex: Female
  Weight: 62.6 kg

DRUGS (7)
  1. DETROL LA [Suspect]
     Indication: URINARY TRACT DISORDER
     Route: 048
  2. DETROL LA [Suspect]
     Indication: HYPERTONIC BLADDER
  3. ATENOLOL [Concomitant]
     Route: 065
  4. FOSAMAX [Concomitant]
     Route: 065
  5. LOPRESSOR [Concomitant]
  6. IRON [Concomitant]
  7. ACETYLSALICYLIC ACID SRT [Concomitant]

REACTIONS (3)
  - FALL [None]
  - FRACTURE [None]
  - HYSTERECTOMY [None]
